FAERS Safety Report 7465189-9 (Version None)
Quarter: 2011Q2

REPORT INFORMATION
  Report Type: 
  Country: None (occurrence: None)
  Receive Date: 20110509
  Receipt Date: 20110503
  Transmission Date: 20111010
  Serious: Yes (Hospitalization, Other)
  Sender: FDA-Public Use
  Company Number: FR-PFIZER INC-2011094477

PATIENT
  Age: 87 Year
  Sex: Male

DRUGS (6)
  1. FOLIC ACID [Suspect]
     Dosage: UNK
     Route: 048
     Dates: start: 20100615, end: 20100625
  2. ATORVASTATIN CALCIUM [Suspect]
     Dosage: UNK
     Route: 048
     Dates: end: 20100630
  3. GINKOR FORT [Suspect]
     Dosage: UNK
     Route: 048
     Dates: start: 20100610, end: 20100625
  4. COUMADIN [Concomitant]
     Dosage: 1 DF, 2X/DAY
     Route: 048
     Dates: start: 20100718
  5. PREVISCAN [Suspect]
     Dosage: 0.5 DF, 1X/DAY
     Route: 048
     Dates: start: 20050101, end: 20100706
  6. CALCIPARINE [Concomitant]
     Dosage: 0.4 ML, 2X/DAY
     Route: 058
     Dates: start: 20100706

REACTIONS (3)
  - FEMUR FRACTURE [None]
  - PRURITUS GENERALISED [None]
  - ERYTHEMA [None]
